FAERS Safety Report 4507353-4 (Version None)
Quarter: 2004Q4

REPORT INFORMATION
  Report Type: 
  Country: None (occurrence: None)
  Receive Date: 20041118
  Receipt Date: 20041104
  Transmission Date: 20050328
  Serious: Yes (Hospitalization)
  Sender: FDA-Public Use
  Company Number: 203464

PATIENT
  Age: 49 Year
  Sex: Male

DRUGS (3)
  1. AVONEX [Suspect]
     Indication: MULTIPLE SCLEROSIS
     Dosage: 30 MCG QW IM
     Route: 030
  2. AMITRIPTYLINE HCL [Concomitant]
  3. GABAPENTIN [Concomitant]

REACTIONS (6)
  - CERVICAL SPINAL STENOSIS [None]
  - INSOMNIA [None]
  - INTERVERTEBRAL DISC DEGENERATION [None]
  - MOVEMENT DISORDER [None]
  - PAIN [None]
  - VISUAL ACUITY REDUCED [None]
